FAERS Safety Report 4559753-4 (Version None)
Quarter: 2005Q1

REPORT INFORMATION
  Report Type: 
  Country: None (occurrence: None)
  Receive Date: 20050114
  Receipt Date: 20040415
  Transmission Date: 20050727
  Serious: Yes (Hospitalization)
  Sender: FDA-Public Use
  Company Number: BDI-006039

PATIENT
  Age: 50 Year
  Sex: Male
  Weight: 94 kg

DRUGS (13)
  1. PROHANCE [Suspect]
     Indication: PAIN IN EXTREMITY
     Dosage: 40 ML ONCE IV
     Route: 042
     Dates: start: 20040413, end: 20040413
  2. PROHANCE [Suspect]
     Indication: PAIN IN EXTREMITY
  3. ACETAMINOPHEN [Concomitant]
  4. LODINE [Concomitant]
  5. GUAIFENESIN [Concomitant]
  6. HYDROCODONE [Concomitant]
  7. ZANTAC [Concomitant]
  8. RISPERDAL [Concomitant]
  9. ZOLOFT [Concomitant]
  10. AMBIEN [Concomitant]
  11. NEURONTIN [Concomitant]
  12. SERTRALINE HCL [Concomitant]
  13. AMOXICILLIN [Concomitant]

REACTIONS (1)
  - HYPERSENSITIVITY [None]
